FAERS Safety Report 7794866-5 (Version None)
Quarter: 2011Q4

REPORT INFORMATION
  Report Type: 
  Country: None (occurrence: None)
  Receive Date: 20111004
  Receipt Date: 20110922
  Transmission Date: 20120403
  Serious: Yes (Hospitalization, Other)
  Sender: FDA-Public Use
  Company Number: PHHY2011CA84846

PATIENT
  Sex: Male

DRUGS (9)
  1. RASILEZ [Suspect]
     Indication: HYPERTENSION
     Dosage: 150 MG, BID
     Dates: start: 20110618, end: 20110817
  2. ZYLOPRIM [Concomitant]
  3. ACIPHEX [Concomitant]
  4. NOVORAPID [Concomitant]
  5. NOVOLIN 70/30 [Concomitant]
  6. METFORMIN HCL [Concomitant]
  7. MONOCOR [Concomitant]
  8. CRESTOR [Concomitant]
  9. DIOVAN HCT [Concomitant]

REACTIONS (1)
  - SYNCOPE [None]
